FAERS Safety Report 20428477 (Version 5)
Quarter: 2022Q2

REPORT INFORMATION
  Report Type: Spontaneous
  Country: US (occurrence: US)
  Receive Date: 20220204
  Receipt Date: 20220427
  Transmission Date: 20220721
  Serious: Yes (Other)
  Sender: FDA-Public Use
  Company Number: US-ORGANON-O2201USA002281

PATIENT
  Sex: Female

DRUGS (6)
  1. ASMANEX [Suspect]
     Active Substance: MOMETASONE FUROATE
     Dosage: TWICE A DAY (BID)
     Dates: start: 20220127, end: 20220127
  2. ASMANEX [Suspect]
     Active Substance: MOMETASONE FUROATE
     Dosage: TWICE A DAY (BID)
     Dates: start: 20220127, end: 20220127
  3. ASMANEX [Suspect]
     Active Substance: MOMETASONE FUROATE
     Dosage: TWICE A DAY (BID)
     Dates: start: 20220127, end: 20220127
  4. ASMANEX [Suspect]
     Active Substance: MOMETASONE FUROATE
     Dosage: TWICE A DAY (BID)
     Dates: start: 20220127, end: 20220127
  5. ASMANEX [Suspect]
     Active Substance: MOMETASONE FUROATE
     Dosage: TWICE A DAY (BID)
     Dates: start: 20220126, end: 20220127
  6. ASMANEX [Suspect]
     Active Substance: MOMETASONE FUROATE
     Dosage: TWICE A DAY (BID)
     Dates: start: 202201, end: 20220127

REACTIONS (12)
  - Pneumonia [Recovered/Resolved]
  - Device malfunction [Unknown]
  - Poor quality device used [Unknown]
  - Device difficult to use [Unknown]
  - Device malfunction [Unknown]
  - Poor quality device used [Unknown]
  - Device difficult to use [Unknown]
  - Device malfunction [Unknown]
  - Poor quality device used [Unknown]
  - Device difficult to use [Unknown]
  - Incorrect dose administered [Unknown]
  - Circumstance or information capable of leading to medication error [Unknown]

NARRATIVE: CASE EVENT DATE: 20220101
